FAERS Safety Report 20302368 (Version 1)
Quarter: 2022Q1

REPORT INFORMATION
  Report Type: Spontaneous
  Country: DE (occurrence: DE)
  Receive Date: 20220106
  Receipt Date: 20220106
  Transmission Date: 20220424
  Serious: Yes (Hospitalization)
  Sender: FDA-Public Use
  Company Number: DE-ADRED-07360-01

PATIENT
  Age: 61 Year
  Sex: Female
  Weight: 59.4 kg

DRUGS (5)
  1. VENLAFAXINE [Suspect]
     Active Substance: VENLAFAXINE HYDROCHLORIDE
     Indication: Product used for unknown indication
     Dosage: ()
     Route: 065
  2. LETROZOLE [Suspect]
     Active Substance: LETROZOLE
     Indication: Product used for unknown indication
     Dosage: 2.5 MG, 1-0-0-0, TABLETS ()
     Route: 048
  3. ZOLPIDEM [Concomitant]
     Active Substance: ZOLPIDEM TARTRATE
     Indication: Product used for unknown indication
     Dosage: 5 MG, 0-0-0-1, TABLETS ()
     Route: 048
  4. OMEPRAZOLE [Concomitant]
     Active Substance: OMEPRAZOLE
     Indication: Product used for unknown indication
     Dosage: 40 MG, 1-0-0-0, SUSTAINED-RELEASE CAPSULES ()
     Route: 048
  5. TRAZODONE [Concomitant]
     Active Substance: TRAZODONE HYDROCHLORIDE
     Indication: Product used for unknown indication
     Dosage: 100 MG, 0-0-0-0.5, TABLETS ()
     Route: 048

REACTIONS (9)
  - Listless [Unknown]
  - Decreased appetite [Unknown]
  - Asthenia [Unknown]
  - Tension [Unknown]
  - Product prescribing error [Unknown]
  - Anxiety [Unknown]
  - Hyperhidrosis [Unknown]
  - Asthenia [Unknown]
  - Head discomfort [Unknown]
